FAERS Safety Report 8849824 (Version 1)
Quarter: 2012Q4

REPORT INFORMATION
  Report Type: 
  Country: FR (occurrence: FR)
  Receive Date: 20121019
  Receipt Date: 20121019
  Transmission Date: 20130627
  Serious: Yes (Hospitalization)
  Sender: FDA-Public Use
  Company Number: FR-VERTEX PHARMACEUTICAL INC.-000000000000001236

PATIENT
  Age: 55 Year
  Sex: Male
  Weight: 55.3 kg

DRUGS (6)
  1. INCIVO [Suspect]
     Indication: HEPATITIS C
     Dosage: Dosage Form: Tablet
     Route: 048
     Dates: start: 20120102, end: 20120325
  2. INCIVO [Suspect]
     Dosage: Dosage Form: Tablet
     Route: 048
     Dates: start: 20120102, end: 20120323
  3. REBETOL [Suspect]
     Indication: HEPATITIS C
     Dosage: 400-0-600mg
     Route: 048
     Dates: start: 20120102
  4. VIRAFERONPEG [Suspect]
     Indication: HEPATITIS C
     Dosage: 100mcg
     Route: 058
     Dates: start: 20120102
  5. FRAXODI [Suspect]
     Indication: PORTAL VEIN THROMBOSIS
     Dosage: Dosage Form: Injection, 400-0-600mg
     Route: 058
     Dates: start: 20120307
  6. NEORECORMON [Concomitant]
     Dosage: UNK, qw

REACTIONS (2)
  - Eczema [Recovered/Resolved]
  - Pruritus [Recovered/Resolved]
